FAERS Safety Report 15798587 (Version 4)
Quarter: 2019Q2

REPORT INFORMATION
  Report Type: Spontaneous
  Country: JP (occurrence: JP)
  Receive Date: 20190108
  Receipt Date: 20190527
  Transmission Date: 20190711
  Serious: Yes (Hospitalization)
  Sender: FDA-Public Use
  Company Number: JP-PFIZER INC-2018457109

PATIENT
  Age: 80 Year
  Sex: Female

DRUGS (4)
  1. BELSOMRA [Concomitant]
     Active Substance: SUVOREXANT
     Dosage: 15 MG (1 TABLET), 1X/DAY (30 MINUTES AFTER A MEAL, BEFORE BED TIME)
  2. SEPAMIT [Concomitant]
     Active Substance: NIFEDIPINE
     Dosage: 0.5 MG, 2X/DAY (IN THE MORNING AND EVENING, 30MINUTES AFTER MEALS)
  3. EFFEXOR [Suspect]
     Active Substance: VENLAFAXINE HYDROCHLORIDE
     Indication: DEPRESSION
     Dosage: 37.5 MG, 1X/DAY (30 MINUTES AFTER SUPPER)
     Route: 048
     Dates: start: 20161202, end: 20161209
  4. ABILIFY [Suspect]
     Active Substance: ARIPIPRAZOLE
     Dosage: 6 MG (0.5 TABLETS), 1X/DAY  (30 MINUTES AFTER SUPPER)
     Route: 048
     Dates: start: 20161128, end: 20170312

REACTIONS (4)
  - Decreased appetite [Recovering/Resolving]
  - Altered state of consciousness [Recovering/Resolving]
  - Condition aggravated [Recovering/Resolving]
  - Sedation complication [Recovering/Resolving]

NARRATIVE: CASE EVENT DATE: 2016
